FAERS Safety Report 21234754 (Version 3)
Quarter: 2022Q3

REPORT INFORMATION
  Report Type: Spontaneous
  Country: IR (occurrence: IR)
  Receive Date: 20220820
  Receipt Date: 20220906
  Transmission Date: 20221026
  Serious: Yes (Other)
  Sender: FDA-Public Use
  Company Number: IR-Accord-274310

PATIENT
  Age: 84 Year
  Sex: Male

DRUGS (4)
  1. FLUOROURACIL [Suspect]
     Active Substance: FLUOROURACIL
     Indication: Gastric cancer
     Dosage: CONTINUOUS INFUSION FOR 46H, THREE SESSIONS WITH 14-DAY INTERVAL BETWEEN SESSIONS
  2. OXALIPLATIN [Suspect]
     Active Substance: OXALIPLATIN
     Indication: Gastric cancer
     Dosage: CONTINUOUS INFUSION FOR 46H, THREE SESSIONS WITH 14-DAY INTERVAL BETWEEN SESSIONS
  3. LEUCOVORIN [Suspect]
     Active Substance: LEUCOVORIN
     Indication: Gastric cancer
     Dosage: CONTINUOUS INFUSION FOR 46H, THREE SESSIONS WITH 14-DAY INTERVAL BETWEEN SESSIONS
  4. METOPROLOL [Concomitant]
     Active Substance: METOPROLOL
     Indication: Hypertension

REACTIONS (1)
  - Cutaneous vasculitis [Recovering/Resolving]
